FAERS Safety Report 14026535 (Version 1)
Quarter: 2017Q3

REPORT INFORMATION
  Report Type: Spontaneous
  Country: US (occurrence: US)
  Receive Date: 20170929
  Receipt Date: 20170929
  Transmission Date: 20171128
  Serious: Yes (Other)
  Sender: FDA-Public Use
  Company Number: US-B.I. PHARMACEUTICALS,INC./RIDGEFIELD-2017-BI-052874

PATIENT
  Sex: Male

DRUGS (2)
  1. PRADAXA [Suspect]
     Active Substance: DABIGATRAN ETEXILATE MESYLATE
     Indication: ATRIAL FIBRILLATION
     Dosage: STRENGTH: 150 MG; FORMULATION: CAPSULE; ADMINISTRATION CORRECT? NR; ACTION TAKEN: DRUG REDUCED
     Route: 048
  2. PRADAXA [Suspect]
     Active Substance: DABIGATRAN ETEXILATE MESYLATE
     Dosage: STRENGTH: 75 MG; FORMULATION: CAPSULE; ADMINISTRATION CORRECT? NR; ACTION TAKEN: DOSE NOT CHANGED
     Route: 048

REACTIONS (1)
  - Bladder cancer [Not Recovered/Not Resolved]
